FAERS Safety Report 17106678 (Version 1)
Quarter: 2019Q4

REPORT INFORMATION
  Report Type: Spontaneous
  Country: TR (occurrence: TR)
  Receive Date: 20191203
  Receipt Date: 20191203
  Transmission Date: 20200122
  Serious: Yes (Hospitalization, Other)
  Sender: FDA-Public Use
  Company Number: TR-BAXTER-2019BAX023969

PATIENT
  Age: 46 Year
  Sex: Female

DRUGS (12)
  1. ROCURONIUM [Suspect]
     Active Substance: ROCURONIUM BROMIDE
     Indication: INDUCTION OF ANAESTHESIA
     Route: 065
  2. ROCURONIUM [Suspect]
     Active Substance: ROCURONIUM BROMIDE
     Indication: MAINTENANCE OF ANAESTHESIA
     Route: 065
  3. SUGAMMADEX [Concomitant]
     Active Substance: SUGAMMADEX
     Indication: EXTUBATION
     Route: 065
  4. OXYGEN. [Suspect]
     Active Substance: OXYGEN
     Indication: MAINTENANCE OF ANAESTHESIA
     Route: 055
  5. FENTANYL. [Suspect]
     Active Substance: FENTANYL
     Indication: INDUCTION OF ANAESTHESIA
     Route: 065
  6. REMIFENTANIL [Suspect]
     Active Substance: REMIFENTANIL
     Indication: MAINTENANCE OF ANAESTHESIA
     Dosage: 0.5 MCG/KG/MIN REMIFENTANIL INFUSION
     Route: 042
  7. TRAMADOL. [Concomitant]
     Active Substance: TRAMADOL
     Indication: PROCEDURAL PAIN
     Route: 065
  8. SUPRANE [Suspect]
     Active Substance: DESFLURANE
     Indication: MAINTENANCE OF ANAESTHESIA
     Dosage: 6 VOLUME%
     Route: 055
  9. PROPOFOL. [Suspect]
     Active Substance: PROPOFOL
     Indication: INDUCTION OF ANAESTHESIA
     Route: 065
  10. PARACETAMOL [Concomitant]
     Active Substance: ACETAMINOPHEN
     Indication: PROCEDURAL PAIN
     Route: 065
  11. OXYGEN. [Suspect]
     Active Substance: OXYGEN
     Indication: OXYGEN THERAPY
     Route: 055
  12. MIDAZOLAM [Suspect]
     Active Substance: MIDAZOLAM HYDROCHLORIDE
     Indication: INDUCTION OF ANAESTHESIA
     Route: 065

REACTIONS (2)
  - Parotitis [Recovered/Resolved]
  - Acute postoperative sialadenitis [Recovered/Resolved]
